FAERS Safety Report 16114373 (Version 1)
Quarter: 2019Q1

REPORT INFORMATION
  Report Type: Spontaneous
  Country: US (occurrence: US)
  Receive Date: 20190325
  Receipt Date: 20190325
  Transmission Date: 20190418
  Serious: No
  Sender: FDA-Public Use
  Company Number: US-TEIKOKU PHARMA USA-TPU2019-00194

PATIENT
  Sex: Female

DRUGS (1)
  1. LIDOCAINE PATCH [Suspect]
     Active Substance: LIDOCAINE
     Indication: HERPES ZOSTER
     Dosage: APPLY UP TO 3 PATCHES (CAN BE CUT IN PIECES) TO AFFECTED AREA FOR 12 HOURS
     Route: 061

REACTIONS (1)
  - Asthenia [Unknown]
